FAERS Safety Report 8383625 (Version 2)
Quarter: 2013Q2

REPORT INFORMATION
  Report Type: Spontaneous
  Country: US (occurrence: None)
  Receive Date: 20111221
  Receipt Date: 20121227
  Transmission Date: 20140414
  Serious: Yes (Other)
  Sender: FDA-Public Use
  Company Number: PHEH2011US02829

PATIENT
  Age: 79 Year
  Sex: Male
  Weight: 101.6 kg

DRUGS (2)
  1. EXJADE [Suspect]
     Indication: IRON OVERLOAD
     Dosage: 500 MG, BID, ORAL
     Route: 048
     Dates: start: 20110824
  2. EXJADE [Suspect]
     Indication: TRANSFUSION REACTION
     Dosage: 500 MG, BID, ORAL
     Route: 048
     Dates: start: 20110824

REACTIONS (1)
  - DIARRHOEA [None]
